FAERS Safety Report 4715653-8 (Version None)
Quarter: 2005Q3

REPORT INFORMATION
  Report Type: 
  Country: None (occurrence: None)
  Receive Date: 20050715
  Receipt Date: 20050715
  Transmission Date: 20060218
  Serious: Yes (Other)
  Sender: FDA-Public Use
  Company Number: None

PATIENT
  Sex: Male
  Weight: 77.1115 kg

DRUGS (3)
  1. MIRAPEX [Suspect]
     Indication: MUSCULOSKELETAL STIFFNESS
     Dosage: 1 PILL 3 TIMES DAY ORAL
     Route: 048
     Dates: start: 20020101, end: 20050714
  2. MIRAPEX [Suspect]
     Indication: PARKINSON'S DISEASE
     Dosage: 1 PILL 3 TIMES DAY ORAL
     Route: 048
     Dates: start: 20020101, end: 20050714
  3. MIRAPEX [Suspect]
     Indication: TREMOR
     Dosage: 1 PILL 3 TIMES DAY ORAL
     Route: 048
     Dates: start: 20020101, end: 20050714

REACTIONS (3)
  - ABNORMAL BEHAVIOUR [None]
  - COMPULSIONS [None]
  - GAMBLING [None]
